FAERS Safety Report 5426265-5 (Version None)
Quarter: 2007Q3

REPORT INFORMATION
  Report Type: 
  Country: None (occurrence: None)
  Receive Date: 20070731
  Receipt Date: 20070525
  Transmission Date: 20080115
  Serious: No
  Sender: FDA-Public Use
  Company Number: 2007PV030460

PATIENT
  Age: 71 Year
  Sex: Female
  Weight: 86.2 kg

DRUGS (3)
  1. EXENATIDE(EXENATIDE) PEN, DISPOSABLE [Suspect]
     Indication: TYPE 2 DIABETES MELLITUS
     Dosage: 5 UG, DAILY (1/D), SUBCUTANEOUS
     Route: 058
     Dates: start: 20070207
  2. ACTOS [Concomitant]
  3. EXENATIDE PEN, DISPOSABLE DEVICE (EXENATIDE PEN) [Concomitant]

REACTIONS (5)
  - ASTHENOPIA [None]
  - ERUCTATION [None]
  - NAUSEA [None]
  - OCULAR DISCOMFORT [None]
  - WEIGHT DECREASED [None]
